FAERS Safety Report 4696153-0 (Version None)
Quarter: 2005Q2

REPORT INFORMATION
  Report Type: 
  Country: None (occurrence: None)
  Receive Date: 20050620
  Receipt Date: 20050602
  Transmission Date: 20051028
  Serious: Yes (Hospitalization)
  Sender: FDA-Public Use
  Company Number: GB-YAMANOUCHI-YEHQ20050539

PATIENT
  Age: 49 Year
  Sex: Female

DRUGS (7)
  1. VESICARE [Suspect]
     Indication: URINARY INCONTINENCE
     Dosage: 5 MG QD PO
     Route: 048
     Dates: start: 20050101
  2. LYRICA [Suspect]
     Indication: EPILEPSY
     Dosage: 50 MG QD PO
     Route: 048
     Dates: start: 20050131, end: 20050203
  3. TEGRETOL [Concomitant]
  4. EPILIM [Concomitant]
  5. ALENDORNATE SODIUM [Concomitant]
  6. RISPERIDONE [Concomitant]
  7. CALCICHEW [Concomitant]

REACTIONS (8)
  - BLOOD CREATINE INCREASED [None]
  - BLOOD UREA DECREASED [None]
  - BRADYCARDIA [None]
  - CONDITION AGGRAVATED [None]
  - CONFUSIONAL STATE [None]
  - DEPRESSED LEVEL OF CONSCIOUSNESS [None]
  - HYPERKALAEMIA [None]
  - HYPOTENSION [None]
